FAERS Safety Report 6538623-6 (Version None)
Quarter: 2010Q1

REPORT INFORMATION
  Report Type: 
  Country: None (occurrence: None)
  Receive Date: 20100115
  Receipt Date: 20100111
  Transmission Date: 20100710
  Serious: Yes (Other)
  Sender: FDA-Public Use
  Company Number: US-ASTRAZENECA-2009SE17848

PATIENT
  Age: 573 Month
  Sex: Female
  Weight: 117.9 kg

DRUGS (9)
  1. SEROQUEL [Suspect]
     Indication: BIPOLAR DISORDER
     Dosage: UPTO 1800MG
     Route: 048
     Dates: start: 20010101, end: 20050101
  2. SEROQUEL [Suspect]
     Indication: DEPRESSION
     Dosage: UPTO 1800MG
     Route: 048
     Dates: start: 20010101, end: 20050101
  3. SEROQUEL [Suspect]
     Indication: OBSESSIVE-COMPULSIVE DISORDER
     Dosage: UPTO 1800MG
     Route: 048
     Dates: start: 20010101, end: 20050101
  4. ABILIFY [Concomitant]
     Dates: start: 20090601, end: 20090801
  5. RISPERDAL [Concomitant]
     Dates: start: 20050101
  6. THORAZINE [Concomitant]
     Dates: start: 20010101
  7. WELLBUTRIN [Concomitant]
     Dates: start: 20050101, end: 20090101
  8. ZOLOFT [Concomitant]
  9. XANAX [Concomitant]
     Dates: start: 20070101

REACTIONS (2)
  - DIABETIC NEUROPATHY [None]
  - TYPE 2 DIABETES MELLITUS [None]
